FAERS Safety Report 21001420 (Version 1)
Quarter: 2022Q2

REPORT INFORMATION
  Report Type: Spontaneous
  Country: CO (occurrence: CO)
  Receive Date: 20220624
  Receipt Date: 20220624
  Transmission Date: 20220720
  Serious: Yes (Death)
  Sender: FDA-Public Use
  Company Number: CO-ABBVIE-22K-036-4445981-00

PATIENT

DRUGS (1)
  1. VENETOCLAX [Suspect]
     Active Substance: VENETOCLAX
     Indication: Chronic lymphocytic leukaemia
     Route: 048
     Dates: start: 20211129

REACTIONS (2)
  - Respiratory disorder [Fatal]
  - COVID-19 [Fatal]

NARRATIVE: CASE EVENT DATE: 20220622
